FAERS Safety Report 19739458 (Version 1)
Quarter: 2021Q3

REPORT INFORMATION
  Report Type: Spontaneous
  Country: US (occurrence: US)
  Receive Date: 20210820
  Receipt Date: 20210820
  Transmission Date: 20211014
  Serious: No
  Sender: FDA-Public Use
  Company Number: None

PATIENT

DRUGS (2)
  1. PANTOPRAZOLE SODIUM. [Suspect]
     Active Substance: PANTOPRAZOLE SODIUM
  2. LIDOCAINE HCL INJECTION [Suspect]
     Active Substance: LIDOCAINE HYDROCHLORIDE
     Route: 058

REACTIONS (5)
  - Wrong product stored [None]
  - Intercepted product administration error [None]
  - Product design issue [None]
  - Product label confusion [None]
  - Product packaging confusion [None]
